FAERS Safety Report 5165015-7 (Version None)
Quarter: 2006Q4

REPORT INFORMATION
  Report Type: 
  Country: None (occurrence: None)
  Receive Date: 20061205
  Receipt Date: 20061130
  Transmission Date: 20070319
  Serious: Yes (Life-Threatening)
  Sender: FDA-Public Use
  Company Number: GB-ROXANE LABORATORIES, INC-2006-DE-06355GD

PATIENT
  Age: 12 Year
  Sex: Female

DRUGS (4)
  1. MORPHINE [Suspect]
     Indication: ABDOMINAL PAIN
     Dosage: PATIENT-CONTROLLED ANALGESIA
     Route: 042
  2. ACETAMINOPHEN [Suspect]
     Indication: ABDOMINAL PAIN
  3. ACETAMINOPHEN [Suspect]
     Route: 042
  4. NSAIDS [Suspect]
     Indication: ABDOMINAL PAIN

REACTIONS (6)
  - DRUG INEFFECTIVE [None]
  - HALLUCINATION, VISUAL [None]
  - LETHARGY [None]
  - MEGACOLON [None]
  - PALLOR [None]
  - PYREXIA [None]
